FAERS Safety Report 8882923 (Version 1)
Quarter: 2012Q4

REPORT INFORMATION
  Report Type: 
  Country: MX (occurrence: MX)
  Receive Date: 20121102
  Receipt Date: 20121102
  Transmission Date: 20130627
  Serious: Yes (Hospitalization)
  Sender: FDA-Public Use
  Company Number: PHHY2012MX099831

PATIENT
  Sex: Female

DRUGS (7)
  1. ACLASTA [Suspect]
     Indication: OSTEOPOROSIS
     Dosage: 5 mg/100ml, per year
     Route: 042
     Dates: start: 201209
  2. DEXILANT [Concomitant]
     Indication: GASTROOESOPHAGEAL REFLUX DISEASE
     Dosage: 1 DF, daily
     Dates: start: 201208
  3. DEXILANT [Concomitant]
     Indication: HIATUS HERNIA
  4. DEXILANT [Concomitant]
     Indication: COLITIS
  5. LASIX [Concomitant]
     Dosage: 1 DF, daily
  6. DIGOXINE [Concomitant]
     Indication: CARDIAC DISORDER
  7. DIOVAN [Concomitant]
     Dosage: 2 DF, BID (2 tablets in the morning and 2 tablets at night)

REACTIONS (1)
  - Lumbar vertebral fracture [Not Recovered/Not Resolved]
